FAERS Safety Report 7470565-4 (Version None)
Quarter: 2011Q2

REPORT INFORMATION
  Report Type: 
  Country: None (occurrence: None)
  Receive Date: 20110510
  Receipt Date: 20110425
  Transmission Date: 20111010
  Serious: No
  Sender: FDA-Public Use
  Company Number: US-B.I. PHARMACEUTICALS,INC./RIDGEFIELD-2011-BP-11717BP

PATIENT
  Age: 69 Year
  Sex: Male

DRUGS (7)
  1. SIMVASTATIN [Concomitant]
     Indication: BLOOD CHOLESTEROL INCREASED
     Dosage: 10 MG
     Route: 048
  2. FLOMAX [Concomitant]
     Indication: PROSTATIC DISORDER
     Route: 048
  3. PLAVIX [Concomitant]
     Indication: THROMBOSIS
     Dosage: 150 MG
     Route: 048
  4. PRADAXA [Suspect]
     Indication: ATRIAL FIBRILLATION
     Dosage: 300 MG
     Route: 048
     Dates: start: 20110419
  5. COUMADIN [Concomitant]
     Dates: end: 20110418
  6. LOSARTAN [Concomitant]
     Indication: HYPERTENSION
     Dosage: 100 MG
     Route: 048
  7. FISH OIL [Concomitant]
     Indication: HYPERTENSION
     Route: 048

REACTIONS (3)
  - EPISTAXIS [None]
  - NASOPHARYNGITIS [None]
  - RECTAL HAEMORRHAGE [None]
